FAERS Safety Report 12094799 (Version 1)
Quarter: 2016Q1

REPORT INFORMATION
  Report Type: Spontaneous
  Country: US (occurrence: US)
  Receive Date: 20160219
  Receipt Date: 20160219
  Transmission Date: 20160526
  Serious: No
  Sender: FDA-Public Use
  Company Number: US-TEVA-634212USA

PATIENT
  Sex: Female

DRUGS (1)
  1. AZILECT [Suspect]
     Active Substance: RASAGILINE MESYLATE
     Indication: PARKINSON^S DISEASE
     Dates: start: 201401

REACTIONS (7)
  - Drug intolerance [Unknown]
  - Drug hypersensitivity [Unknown]
  - Headache [Unknown]
  - Dizziness [Unknown]
  - Joint swelling [Unknown]
  - Nausea [Unknown]
  - Drug ineffective [Unknown]
